FAERS Safety Report 24664702 (Version 1)
Quarter: 2024Q4

REPORT INFORMATION
  Report Type: Spontaneous
  Country: US (occurrence: US)
  Receive Date: 20241126
  Receipt Date: 20241126
  Transmission Date: 20250114
  Serious: No
  Sender: AMGEN
  Company Number: US-AMGEN-USASP2024231095

PATIENT
  Age: 39 Year

DRUGS (2)
  1. PREDNISONE [Suspect]
     Active Substance: PREDNISONE
     Indication: Focal segmental glomerulosclerosis
     Dosage: TAPER
     Route: 065
  2. RITUXIMAB [Suspect]
     Active Substance: RITUXIMAB
     Indication: Focal segmental glomerulosclerosis
     Dosage: 1 GRAM
     Route: 065

REACTIONS (3)
  - Proteinuria [Unknown]
  - Drug effective for unapproved indication [Unknown]
  - Off label use [Unknown]
